FAERS Safety Report 13544183 (Version 1)
Quarter: 2017Q2

REPORT INFORMATION
  Report Type: Spontaneous
  Country: US (occurrence: US)
  Receive Date: 20170512
  Receipt Date: 20170512
  Transmission Date: 20170830
  Serious: Yes (Other)
  Sender: FDA-Public Use
  Company Number: None

PATIENT
  Age: 42 Year
  Sex: Female
  Weight: 74.25 kg

DRUGS (3)
  1. LEXAPRO [Concomitant]
     Active Substance: ESCITALOPRAM OXALATE
  2. DEPO-MEDROL [Suspect]
     Active Substance: METHYLPREDNISOLONE ACETATE
     Route: 058
     Dates: start: 20170321
  3. CYCLOBENZAPRINE. [Concomitant]
     Active Substance: CYCLOBENZAPRINE

REACTIONS (8)
  - Weight increased [None]
  - Muscle atrophy [None]
  - Swelling face [None]
  - Hyperhidrosis [None]
  - Depressed mood [None]
  - Injection site pain [None]
  - Skin hyperpigmentation [None]
  - Bone pain [None]

NARRATIVE: CASE EVENT DATE: 20170321
